FAERS Safety Report 17398244 (Version 13)
Quarter: 2022Q3

REPORT INFORMATION
  Report Type: Report from Study
  Country: FR (occurrence: FR)
  Receive Date: 20200210
  Receipt Date: 20220706
  Transmission Date: 20221026
  Serious: Yes (Other)
  Sender: FDA-Public Use
  Company Number: FR-ABBVIE-20K-056-3263487-00

PATIENT
  Age: 71 Year
  Sex: Female
  Weight: 74 kg

DRUGS (20)
  1. VENETOCLAX [Suspect]
     Active Substance: VENETOCLAX
     Indication: Chronic lymphocytic leukaemia
     Route: 048
     Dates: start: 20191217, end: 20191223
  2. VENETOCLAX [Suspect]
     Active Substance: VENETOCLAX
     Route: 048
     Dates: start: 20191224, end: 20200107
  3. VENETOCLAX [Suspect]
     Active Substance: VENETOCLAX
     Route: 048
     Dates: start: 20200108, end: 20200127
  4. VENETOCLAX [Suspect]
     Active Substance: VENETOCLAX
     Route: 048
     Dates: start: 20200128, end: 20200203
  5. VENETOCLAX [Suspect]
     Active Substance: VENETOCLAX
     Route: 048
     Dates: start: 20200204, end: 20220119
  6. ALPRAZOLAM [Concomitant]
     Active Substance: ALPRAZOLAM
     Indication: Anxiety
     Dates: start: 20191218
  7. MIANSERIN HYDROCHLORIDE [Concomitant]
     Active Substance: MIANSERIN HYDROCHLORIDE
     Indication: Depression
     Dates: start: 20191106
  8. DAFALGAN [Concomitant]
     Active Substance: ACETAMINOPHEN
     Indication: Pain
     Dates: start: 2019
  9. INNOHEP [Concomitant]
     Active Substance: TINZAPARIN SODIUM
     Indication: Prophylaxis
     Dates: start: 201911
  10. FASTURTEC [Concomitant]
     Active Substance: RASBURICASE
     Indication: Prophylaxis
     Dates: start: 20191217, end: 20191217
  11. FASTURTEC [Concomitant]
     Active Substance: RASBURICASE
     Dates: start: 20191223, end: 20191223
  12. FASTURTEC [Concomitant]
     Active Substance: RASBURICASE
     Dates: start: 20191230, end: 20191230
  13. TRAMADOL [Concomitant]
     Active Substance: TRAMADOL
     Indication: Pain
     Dates: start: 20191217
  14. VALACYCLOVIR HYDROCHLORIDE [Concomitant]
     Active Substance: VALACYCLOVIR HYDROCHLORIDE
     Indication: Infection prophylaxis
     Dates: start: 20200107
  15. PHLOROGLUCINOL [Concomitant]
     Active Substance: PHLOROGLUCINOL
     Indication: Abdominal pain
     Dates: start: 20200204
  16. RITUXIMAB [Concomitant]
     Active Substance: RITUXIMAB
     Indication: Chronic lymphocytic leukaemia
     Dates: start: 20090114, end: 20090708
  17. RITUXIMAB [Concomitant]
     Active Substance: RITUXIMAB
     Dates: start: 20200203, end: 20200702
  18. PRISTINAMYCIN [Concomitant]
     Active Substance: PRISTINAMYCIN
     Indication: Antifungal treatment
     Dates: start: 20200310, end: 202003
  19. APIXABAN [Concomitant]
     Active Substance: APIXABAN
     Indication: Post thrombotic syndrome
     Dates: start: 202006
  20. SARS-COV-2 VACCINE [Concomitant]
     Indication: COVID-19 prophylaxis
     Dates: start: 20210407, end: 20211005

REACTIONS (34)
  - Acute kidney injury [Recovered/Resolved]
  - Bronchitis [Recovered/Resolved]
  - Oral fungal infection [Recovered/Resolved]
  - Abdominal pain [Recovered/Resolved]
  - Palpitations [Recovered/Resolved]
  - Acute sinusitis [Recovered/Resolved]
  - Hyperphosphataemia [Recovered/Resolved]
  - Thymus disorder [Not Recovered/Not Resolved]
  - Inappropriate schedule of product administration [Unknown]
  - Hypoxia [Recovered/Resolved]
  - Cholestasis [Not Recovered/Not Resolved]
  - Rhinitis [Recovered/Resolved]
  - Bronchitis chronic [Recovered/Resolved]
  - Hypogammaglobulinaemia [Recovered/Resolved]
  - Haematoma [Recovered/Resolved]
  - Asthenia [Not Recovered/Not Resolved]
  - Hypoxia [Recovered/Resolved]
  - Hypogammaglobulinaemia [Recovering/Resolving]
  - Large intestine infection [Recovered/Resolved]
  - Haemangioma of liver [Not Recovered/Not Resolved]
  - Osteoarthritis [Not Recovered/Not Resolved]
  - Pancreatic neoplasm [Not Recovered/Not Resolved]
  - Hypocalcaemia [Not Recovered/Not Resolved]
  - Hyperuricaemia [Recovered/Resolved]
  - Pneumonia [Recovered/Resolved]
  - Hyperkalaemia [Recovered/Resolved with Sequelae]
  - Hyperkalaemia [Recovered/Resolved]
  - Leukopenia [Recovered/Resolved]
  - Oedema peripheral [Not Recovered/Not Resolved]
  - Diarrhoea [Recovered/Resolved]
  - Diarrhoea [Recovered/Resolved]
  - Nausea [Recovered/Resolved]
  - Neutropenia [Recovered/Resolved]
  - Neutropenia [Recovered/Resolved]

NARRATIVE: CASE EVENT DATE: 20191201
